FAERS Safety Report 5818391-3 (Version None)
Quarter: 2008Q3

REPORT INFORMATION
  Report Type: 
  Country: None (occurrence: None)
  Receive Date: 20080716
  Receipt Date: 20080711
  Transmission Date: 20090109
  Serious: Yes (Death)
  Sender: FDA-Public Use
  Company Number: 2008SP014124

PATIENT

DRUGS (2)
  1. TEMODAL [Suspect]
     Indication: GLIOBLASTOMA
     Dosage: PO
     Route: 048
  2. CORTISONE (CON.) [Concomitant]

REACTIONS (6)
  - ABDOMINAL PAIN [None]
  - HAEMATOCRIT DECREASED [None]
  - HAEMOGLOBIN DECREASED [None]
  - PLATELET COUNT DECREASED [None]
  - RED BLOOD CELL COUNT DECREASED [None]
  - SKIN LESION [None]
